FAERS Safety Report 13393856 (Version 6)
Quarter: 2017Q3

REPORT INFORMATION
  Report Type: Spontaneous
  Country: KR (occurrence: KR)
  Receive Date: 20170331
  Receipt Date: 20170822
  Transmission Date: 20171127
  Serious: Yes (Other)
  Sender: FDA-Public Use
  Company Number: KR-009507513-1703KOR013378

PATIENT
  Age: 72 Year
  Sex: Female
  Weight: 42.5 kg

DRUGS (46)
  1. EMEND (FOSAPREPITANT DIMEGLUMINE) [Suspect]
     Active Substance: FOSAPREPITANT DIMEGLUMINE
     Dosage: 150 MG, ONCE
     Route: 042
     Dates: start: 20170109, end: 20170109
  2. DOXORUBICIN HYDROCHLORIDE. [Concomitant]
     Active Substance: DOXORUBICIN HYDROCHLORIDE
     Dosage: 62 MG, ONCE, CYCLE 5
     Route: 042
     Dates: start: 20170201, end: 20170201
  3. ENDOXAN [Concomitant]
     Active Substance: CYCLOPHOSPHAMIDE
     Dosage: 908 MG, ONCE, CYCLE 2
     Route: 042
     Dates: start: 20161118, end: 20161118
  4. VINCRISTINE SULFATE. [Concomitant]
     Active Substance: VINCRISTINE SULFATE
     Dosage: 1.7 MG, ONCE, CYCLE 4
     Route: 042
     Dates: start: 20170109, end: 20170109
  5. VINCRISTINE SULFATE. [Concomitant]
     Active Substance: VINCRISTINE SULFATE
     Dosage: 1.7 MG, ONCE, CYCLE 5
     Route: 042
     Dates: start: 20170201, end: 20170201
  6. ALOXI [Concomitant]
     Active Substance: PALONOSETRON HYDROCHLORIDE
     Indication: CHEMOTHERAPY
     Dosage: 5 ML, ONCE
     Route: 042
     Dates: start: 20161025, end: 20161025
  7. ONGLYZA [Concomitant]
     Active Substance: SAXAGLIPTIN HYDROCHLORIDE
     Indication: DIABETES MELLITUS
     Dosage: 1 (2.5 MG) TABLET, QD
     Route: 048
     Dates: end: 20170223
  8. HEXAMEDINE [Concomitant]
     Indication: PROPHYLAXIS
     Dosage: 1 BOTTLE, QID (ROUTE: GARGLE)
     Route: 048
     Dates: start: 20160818, end: 201702
  9. EMEND (FOSAPREPITANT DIMEGLUMINE) [Suspect]
     Active Substance: FOSAPREPITANT DIMEGLUMINE
     Dosage: 150 MG, ONCE
     Route: 042
     Dates: start: 20170201, end: 20170201
  10. DOXORUBICIN HYDROCHLORIDE. [Concomitant]
     Active Substance: DOXORUBICIN HYDROCHLORIDE
     Dosage: 62 MG, ONCE, CYCLE 6
     Route: 042
     Dates: start: 20170222, end: 20170222
  11. ENDOXAN [Concomitant]
     Active Substance: CYCLOPHOSPHAMIDE
     Indication: DIFFUSE LARGE B-CELL LYMPHOMA
     Dosage: 950 MG, ONCE, CYCLE 1
     Route: 042
     Dates: start: 20161025, end: 20161025
  12. ENDOXAN [Concomitant]
     Active Substance: CYCLOPHOSPHAMIDE
     Dosage: 937 MG, ONCE, CYCLE 4
     Route: 042
     Dates: start: 20170109, end: 20170109
  13. VINCRISTINE SULFATE. [Concomitant]
     Active Substance: VINCRISTINE SULFATE
     Dosage: 1.7 MG, ONCE, CYCLE 3
     Route: 042
     Dates: start: 20161209, end: 20161209
  14. GASTREX (ECABET SODIUM) [Concomitant]
     Indication: PROPHYLAXIS
     Dosage: 1 PK, BID
     Route: 048
     Dates: start: 20161018, end: 20170223
  15. SUSPEN ER [Concomitant]
     Indication: PYREXIA
     Dosage: 1 (650 MG) TABLET, QD
     Route: 048
     Dates: start: 20161021, end: 20170303
  16. MABTHERA [Concomitant]
     Active Substance: RITUXIMAB
     Dosage: 470 MG, ONCE, CYCLE 4
     Route: 042
     Dates: start: 20170109, end: 20170109
  17. ALOXI [Concomitant]
     Active Substance: PALONOSETRON HYDROCHLORIDE
     Dosage: 5 ML, ONCE
     Route: 042
     Dates: start: 20170201, end: 20170201
  18. EMEND (FOSAPREPITANT DIMEGLUMINE) [Suspect]
     Active Substance: FOSAPREPITANT DIMEGLUMINE
     Dosage: 150 MG, ONCE
     Route: 042
     Dates: start: 20161118, end: 20161118
  19. DOXORUBICIN HYDROCHLORIDE. [Concomitant]
     Active Substance: DOXORUBICIN HYDROCHLORIDE
     Dosage: 62 MG, ONCE, CYCLE 3
     Route: 042
     Dates: start: 20161209, end: 20161209
  20. MABTHERA [Concomitant]
     Active Substance: RITUXIMAB
     Dosage: 470 MG, ONCE, CYCLE 3
     Route: 042
     Dates: start: 20161209, end: 20161209
  21. EMEND (FOSAPREPITANT DIMEGLUMINE) [Suspect]
     Active Substance: FOSAPREPITANT DIMEGLUMINE
     Dosage: 150 MG, ONCE
     Route: 042
     Dates: start: 20161209, end: 20161209
  22. EMEND (FOSAPREPITANT DIMEGLUMINE) [Suspect]
     Active Substance: FOSAPREPITANT DIMEGLUMINE
     Dosage: 150 MG, ONCE
     Route: 042
     Dates: start: 20170222, end: 20170222
  23. DOXORUBICIN HYDROCHLORIDE. [Concomitant]
     Active Substance: DOXORUBICIN HYDROCHLORIDE
     Indication: DIFFUSE LARGE B-CELL LYMPHOMA
     Dosage: 63 MG, ONCE, CYCLE 1
     Route: 042
     Dates: start: 20161025, end: 20161025
  24. ENDOXAN [Concomitant]
     Active Substance: CYCLOPHOSPHAMIDE
     Dosage: 937 MG, ONCE, CYCLE 6
     Route: 042
     Dates: start: 20170222, end: 20170222
  25. MABTHERA [Concomitant]
     Active Substance: RITUXIMAB
     Dosage: 455 MG, ONCE, CYCLE 2
     Route: 042
     Dates: start: 20161118, end: 20161118
  26. ALOXI [Concomitant]
     Active Substance: PALONOSETRON HYDROCHLORIDE
     Dosage: 5 ML, ONCE
     Route: 042
     Dates: start: 20170109, end: 20170109
  27. ALOXI [Concomitant]
     Active Substance: PALONOSETRON HYDROCHLORIDE
     Dosage: 5 ML, ONCE
     Route: 042
     Dates: start: 20170222, end: 20170222
  28. FEROBA U [Concomitant]
     Indication: ANAEMIA
     Dosage: 1 TABLET, BID
     Route: 048
     Dates: start: 201610
  29. FLUDEX [Concomitant]
     Active Substance: INDAPAMIDE
     Indication: HYPERTENSION
     Dosage: 1 (1.5 MG) TABLET, QD
     Route: 048
     Dates: start: 20161017, end: 20161017
  30. GASMOTIN [Concomitant]
     Active Substance: MOSAPRIDE CITRATE
     Indication: PROPHYLAXIS
     Dosage: 1 PK, TID
     Route: 048
     Dates: start: 201610, end: 20170223
  31. MABTHERA [Concomitant]
     Active Substance: RITUXIMAB
     Dosage: 470 MG, ONCE, CYCLE 5
     Route: 042
     Dates: start: 20170201, end: 20170201
  32. MABTHERA [Concomitant]
     Active Substance: RITUXIMAB
     Dosage: 470 MG, ONCE, CYCLE 6
     Route: 042
     Dates: start: 20170222, end: 20170222
  33. VINCRISTINE SULFATE. [Concomitant]
     Active Substance: VINCRISTINE SULFATE
     Indication: DIFFUSE LARGE B-CELL LYMPHOMA
     Dosage: 1.7 MG, ONCE, CYCLE 1, STRENGTH: 1MG/ML 2 ML
     Route: 042
     Dates: start: 20161025, end: 20161025
  34. VINCRISTINE SULFATE. [Concomitant]
     Active Substance: VINCRISTINE SULFATE
     Dosage: 1.7 MG, ONCE, CYCLE 2
     Route: 042
     Dates: start: 20161118, end: 20161118
  35. ALOXI [Concomitant]
     Active Substance: PALONOSETRON HYDROCHLORIDE
     Dosage: 5 ML, ONCE
     Route: 042
     Dates: start: 20161209, end: 20161209
  36. DIAMICRON [Concomitant]
     Active Substance: GLICLAZIDE
     Indication: DIABETES MELLITUS
     Dosage: 1 TABLET (60 MG), QD
     Route: 048
     Dates: start: 20161018, end: 20170223
  37. STABLON [Concomitant]
     Active Substance: TIANEPTINE
     Indication: PROPHYLAXIS
     Dosage: 1 (12.5MG) TABLET, TID
     Route: 048
     Dates: start: 201610, end: 20170223
  38. MABTHERA [Concomitant]
     Active Substance: RITUXIMAB
     Indication: DIFFUSE LARGE B-CELL LYMPHOMA
     Dosage: 476 MG, ONCE, CYCLE 1
     Route: 042
     Dates: start: 20161025, end: 20161025
  39. VINCRISTINE SULFATE. [Concomitant]
     Active Substance: VINCRISTINE SULFATE
     Dosage: 1.7 MG, ONCE, CYCLE 6
     Route: 042
     Dates: start: 20170222, end: 20170222
  40. EMEND (FOSAPREPITANT DIMEGLUMINE) [Suspect]
     Active Substance: FOSAPREPITANT DIMEGLUMINE
     Indication: PROPHYLAXIS OF NAUSEA AND VOMITING
     Dosage: 150 MG, ONCE
     Route: 042
     Dates: start: 20161025, end: 20161025
  41. DOXORUBICIN HYDROCHLORIDE. [Concomitant]
     Active Substance: DOXORUBICIN HYDROCHLORIDE
     Dosage: 60 MG, ONCE, CYCLE 2
     Route: 042
     Dates: start: 20161118, end: 20161118
  42. DOXORUBICIN HYDROCHLORIDE. [Concomitant]
     Active Substance: DOXORUBICIN HYDROCHLORIDE
     Dosage: 62 MG, ONCE, CYCLE 4
     Route: 042
     Dates: start: 20170109, end: 20170109
  43. ENDOXAN [Concomitant]
     Active Substance: CYCLOPHOSPHAMIDE
     Dosage: 937 MG, ONCE, CYCLE 3
     Route: 042
     Dates: start: 20161209, end: 20161209
  44. ENDOXAN [Concomitant]
     Active Substance: CYCLOPHOSPHAMIDE
     Dosage: 937 MG, ONCE, CYCLE 5
     Route: 042
     Dates: start: 20170201, end: 20170201
  45. ALOXI [Concomitant]
     Active Substance: PALONOSETRON HYDROCHLORIDE
     Dosage: 5 ML, ONCE
     Route: 042
     Dates: start: 20161118, end: 20161118
  46. DENOGAN [Concomitant]
     Active Substance: PROPACETAMOL HYDROCHLORIDE
     Indication: PYREXIA
     Dosage: 500 MG, QD
     Route: 042
     Dates: start: 20161017, end: 20161017

REACTIONS (4)
  - Urinary incontinence [Recovered/Resolved]
  - Blood potassium decreased [Recovered/Resolved]
  - Oral candidiasis [Recovered/Resolved]
  - Pancytopenia [Recovered/Resolved]

NARRATIVE: CASE EVENT DATE: 20161025
